FAERS Safety Report 16841370 (Version 1)
Quarter: 2019Q3

REPORT INFORMATION
  Report Type: Spontaneous
  Country: CN (occurrence: CN)
  Receive Date: 20190923
  Receipt Date: 20190923
  Transmission Date: 20191005
  Serious: Yes (Death, Hospitalization, Other)
  Sender: FDA-Public Use
  Company Number: CN-ACTELION-A-CH2019-196018

PATIENT

DRUGS (7)
  1. VENTAVIS [Concomitant]
     Active Substance: ILOPROST
     Dosage: 0.5 ?G/KG, QD
     Route: 055
  2. EPOPROSTENOL SODIUM. [Concomitant]
     Active Substance: EPOPROSTENOL SODIUM
     Indication: PULMONARY ARTERIAL HYPERTENSION
  3. VENTAVIS [Concomitant]
     Active Substance: ILOPROST
     Dosage: 20.0 ?G/KG, QD
     Route: 055
  4. TREPROSTINIL. [Concomitant]
     Active Substance: TREPROSTINIL
  5. SILDENAFIL. [Concomitant]
     Active Substance: SILDENAFIL
  6. BOSENTAN. [Suspect]
     Active Substance: BOSENTAN
     Indication: PULMONARY ARTERIAL HYPERTENSION
     Dosage: 1 MG/KG, BID
     Route: 048
  7. BOSENTAN. [Suspect]
     Active Substance: BOSENTAN
     Dosage: 2.0 MG/KG, BID
     Route: 048

REACTIONS (6)
  - Pulmonary arterial hypertension [Unknown]
  - Condition aggravated [Unknown]
  - Thoracotomy [Unknown]
  - Oedema peripheral [Unknown]
  - Sudden death [Fatal]
  - Cardiac failure [Unknown]
